FAERS Safety Report 21740498 (Version 1)
Quarter: 2022Q4

REPORT INFORMATION
  Report Type: Report from Study
  Country: US (occurrence: US)
  Receive Date: 20221216
  Receipt Date: 20221216
  Transmission Date: 20230112
  Serious: No
  Sender: FDA-Public Use
  Company Number: US-ETON PHARMACEUTICALS, INC-2022ETO000318

PATIENT

DRUGS (1)
  1. ALKINDI SPRINKLE [Suspect]
     Active Substance: HYDROCORTISONE
     Indication: Adrenal insufficiency
     Dosage: 6MG DAILY IN DIVIDED DOSES AS 4MG IN THE MORNING AND 2MG IN THE EVENING
     Route: 048
     Dates: start: 20220901

REACTIONS (2)
  - Product use complaint [Unknown]
  - Decreased appetite [Unknown]
